FAERS Safety Report 7635168-7 (Version None)
Quarter: 2011Q3

REPORT INFORMATION
  Report Type: 
  Country: None (occurrence: None)
  Receive Date: 20110726
  Receipt Date: 20110714
  Transmission Date: 20111222
  Serious: Yes (Hospitalization, Other)
  Sender: FDA-Public Use
  Company Number: US-BAYER-2011-030617

PATIENT
  Age: 45 Year
  Sex: Female
  Weight: 61.678 kg

DRUGS (4)
  1. NAPROXEN (ALEVE) [Concomitant]
     Dosage: UNK UNK, PRN
  2. YAZ [Suspect]
     Indication: CONTRACEPTION
     Dosage: UNK
     Dates: start: 20071101, end: 20090406
  3. ASPIRIN [Concomitant]
  4. YAZ [Suspect]

REACTIONS (6)
  - MENTAL DISORDER [None]
  - INJURY [None]
  - PAIN [None]
  - ANXIETY [None]
  - ANHEDONIA [None]
  - DEEP VEIN THROMBOSIS [None]
